FAERS Safety Report 10336223 (Version 1)
Quarter: 2014Q3

REPORT INFORMATION
  Report Type: Spontaneous
  Country: JP (occurrence: JP)
  Receive Date: 20140723
  Receipt Date: 20140723
  Transmission Date: 20150326
  Serious: Yes (Other)
  Sender: FDA-Public Use
  Company Number: PHHY2012JP132765

PATIENT
  Age: 60 Year
  Sex: Male

DRUGS (1)
  1. EXJADE [Suspect]
     Active Substance: DEFERASIROX
     Indication: ADULT T-CELL LYMPHOMA/LEUKAEMIA
     Dosage: 125 MG, DAILY 5 MG/KG
     Dates: start: 201208

REACTIONS (1)
  - Urinary bladder haemorrhage [Unknown]

NARRATIVE: CASE EVENT DATE: 201209
